FAERS Safety Report 25271351 (Version 2)
Quarter: 2025Q2

REPORT INFORMATION
  Report Type: Spontaneous
  Country: NL (occurrence: NL)
  Receive Date: 20250506
  Receipt Date: 20250515
  Transmission Date: 20250717
  Serious: Yes (Hospitalization, Other)
  Sender: CELLTRION
  Company Number: NL-CELLTRION INC.-2025NL012891

PATIENT

DRUGS (2)
  1. INFLIXIMAB [Suspect]
     Active Substance: INFLIXIMAB
     Indication: Product used for unknown indication
     Route: 058
  2. INFLIXIMAB [Suspect]
     Active Substance: INFLIXIMAB
     Dosage: 240 MG, Q2WEEKS
     Route: 058
     Dates: start: 20250124

REACTIONS (3)
  - Ileal stenosis [Recovered/Resolved]
  - Bowel preparation [Recovered/Resolved]
  - Colonoscopy [Recovered/Resolved]

NARRATIVE: CASE EVENT DATE: 20250417
